FAERS Safety Report 17887878 (Version 1)
Quarter: 2020Q2

REPORT INFORMATION
  Report Type: Spontaneous
  Country: NL (occurrence: NL)
  Receive Date: 20200612
  Receipt Date: 20200612
  Transmission Date: 20200714
  Serious: Yes (Other)
  Sender: FDA-Public Use
  Company Number: NL-AUROBINDO-AUR-APL-2020-028127

PATIENT
  Age: 92 Year
  Sex: Female
  Weight: 75 kg

DRUGS (1)
  1. ONDANSETRON ORODISPERSABLE TABLET [Suspect]
     Active Substance: ONDANSETRON
     Indication: NAUSEA
     Dosage: 8 MILLIGRAM, ONCE A DAY (2X1T)
     Route: 065
     Dates: start: 20200421, end: 20200525

REACTIONS (1)
  - Pemphigoid [Not Recovered/Not Resolved]

NARRATIVE: CASE EVENT DATE: 20200512
